FAERS Safety Report 12565572 (Version 3)
Quarter: 2016Q4

REPORT INFORMATION
  Report Type: Spontaneous
  Country: CZ (occurrence: CZ)
  Receive Date: 20160718
  Receipt Date: 20161223
  Transmission Date: 20170207
  Serious: Yes (Life-Threatening, Hospitalization)
  Sender: FDA-Public Use
  Company Number: CZ-B. BRAUN MEDICAL INC.-1055185

PATIENT
  Age: 30 Year
  Sex: Female
  Weight: 72 kg

DRUGS (10)
  1. ACETAMINOPHEN. [Suspect]
     Active Substance: ACETAMINOPHEN
     Route: 054
     Dates: start: 20160621, end: 20160621
  2. PARACETAMOL [Suspect]
     Active Substance: ACETAMINOPHEN
     Route: 054
     Dates: start: 20160621, end: 20160621
  3. SODIUM CHLORIDE INJECTIONS USP 0264-7800-00 0264-7800-10 [Suspect]
     Active Substance: SODIUM CHLORIDE
     Indication: GENERAL ANAESTHESIA
     Dates: start: 20160621, end: 20160621
  4. DIAZEPAM. [Suspect]
     Active Substance: DIAZEPAM
     Dates: start: 20160621, end: 20160621
  5. SODIUM CHLORIDE. [Suspect]
     Active Substance: SODIUM CHLORIDE
     Dates: start: 20160621, end: 20160621
  6. METAMIZOLE SODIUM MONOHYDRATE [Suspect]
     Active Substance: METAMIZOLE SODIUM
     Dates: start: 20160621, end: 20160621
  7. MIDAZOLAM [Suspect]
     Active Substance: MIDAZOLAM\MIDAZOLAM HYDROCHLORIDE
     Dates: start: 20160621, end: 20160621
  8. PROPOFOL. [Suspect]
     Active Substance: PROPOFOL
     Route: 042
     Dates: start: 20160621, end: 20160621
  9. ALFENTANIL. [Suspect]
     Active Substance: ALFENTANIL
     Route: 042
     Dates: start: 20160621, end: 20160621
  10. ATROPINE SULFATE. [Suspect]
     Active Substance: ATROPINE SULFATE
     Dates: start: 20160621, end: 20160621

REACTIONS (9)
  - Peritoneal haemorrhage [Recovered/Resolved]
  - Sinus tachycardia [None]
  - Pleural effusion [Recovered/Resolved]
  - Disseminated intravascular coagulation [Recovered/Resolved]
  - Product quality issue [Recovered/Resolved]
  - Thrombocytopenia [None]
  - Medication error [Recovered/Resolved]
  - Microcytic anaemia [None]
  - Shock haemorrhagic [None]

NARRATIVE: CASE EVENT DATE: 20160621
